FAERS Safety Report 6920491-1 (Version None)
Quarter: 2010Q3

REPORT INFORMATION
  Report Type: 
  Country: None (occurrence: None)
  Receive Date: 20100812
  Receipt Date: 20100805
  Transmission Date: 20110219
  Serious: No
  Sender: FDA-Public Use
  Company Number: US-BIOGENIDEC-2010BI026922

PATIENT
  Sex: Female

DRUGS (1)
  1. TYSABRI [Suspect]
     Indication: MULTIPLE SCLEROSIS
     Route: 042
     Dates: start: 20090825

REACTIONS (6)
  - CENTRAL NERVOUS SYSTEM LESION [None]
  - MALAISE [None]
  - SALIVARY HYPERSECRETION [None]
  - STRESS [None]
  - VISUAL IMPAIRMENT [None]
  - VOMITING [None]
